FAERS Safety Report 12456369 (Version 1)
Quarter: 2016Q2

REPORT INFORMATION
  Report Type: Spontaneous
  Country: NZ (occurrence: NZ)
  Receive Date: 20160610
  Receipt Date: 20160610
  Transmission Date: 20160815
  Serious: Yes (Hospitalization, Other)
  Sender: FDA-Public Use
  Company Number: NZ-ELI_LILLY_AND_COMPANY-NZ201606001605

PATIENT
  Age: 85 Year
  Sex: Female

DRUGS (8)
  1. OLANZAPINE. [Suspect]
     Active Substance: OLANZAPINE
     Dosage: 5 MG, QD
     Route: 065
  2. CILAZAPRIL [Concomitant]
     Active Substance: CILAZAPRIL ANHYDROUS
     Dosage: UNK, UNKNOWN
     Route: 065
  3. OLANZAPINE. [Suspect]
     Active Substance: OLANZAPINE
     Indication: SCHIZOAFFECTIVE DISORDER
     Dosage: 12.5 MG, QD
     Route: 065
  4. DILTIAZEM [Concomitant]
     Active Substance: DILTIAZEM
     Dosage: UNK, UNKNOWN
     Route: 065
  5. PIPOTHIAZINE [Concomitant]
     Dosage: 75 MG, TID
     Route: 065
  6. BUDESONIDE. [Concomitant]
     Active Substance: BUDESONIDE
     Dosage: UNK, UNKNOWN
     Route: 065
  7. EFORMOTEROL [Concomitant]
     Active Substance: FORMOTEROL
     Dosage: UNK, UNKNOWN
     Route: 065
  8. SALBUTAMOL [Concomitant]
     Active Substance: ALBUTEROL
     Dosage: UNK, UNKNOWN
     Route: 065

REACTIONS (7)
  - Hallucination, auditory [Recovering/Resolving]
  - Contusion [Unknown]
  - Extrapyramidal disorder [Unknown]
  - Persecutory delusion [Unknown]
  - Erotomanic delusion [Unknown]
  - Fall [Recovered/Resolved]
  - Periorbital haematoma [Unknown]
